FAERS Safety Report 14474075 (Version 1)
Quarter: 2018Q1

REPORT INFORMATION
  Report Type: Spontaneous
  Country: US (occurrence: US)
  Receive Date: 20180201
  Receipt Date: 20180201
  Transmission Date: 20180509
  Serious: Yes (Other)
  Sender: FDA-Public Use
  Company Number: US-JNJFOC-20180131134

PATIENT
  Sex: Male
  Weight: 119.3 kg

DRUGS (1)
  1. INVOKANA [Suspect]
     Active Substance: CANAGLIFLOZIN
     Indication: PRODUCT USED FOR UNKNOWN INDICATION
     Route: 065
     Dates: start: 201503

REACTIONS (4)
  - Feeling abnormal [Unknown]
  - Dialysis [Recovered/Resolved]
  - Musculoskeletal disorder [Unknown]
  - Thinking abnormal [Recovered/Resolved]
